FAERS Safety Report 7422937-1 (Version None)
Quarter: 2011Q2

REPORT INFORMATION
  Report Type: 
  Country: None (occurrence: None)
  Receive Date: 20110419
  Receipt Date: 20110405
  Transmission Date: 20111010
  Serious: Yes (Other)
  Sender: FDA-Public Use
  Company Number: CA-JNJFOC-20110402883

PATIENT
  Sex: Female
  Weight: 58.6 kg

DRUGS (3)
  1. REMICADE [Suspect]
     Dosage: DOSE NUMBER 18
     Route: 042
  2. REMICADE [Suspect]
     Indication: PRODUCT USED FOR UNKNOWN INDICATION
     Route: 042
  3. BENADRYL [Concomitant]
     Indication: PREMEDICATION
     Route: 042

REACTIONS (7)
  - PARAESTHESIA [None]
  - DYSPNOEA [None]
  - PARAESTHESIA ORAL [None]
  - BLOOD PRESSURE INCREASED [None]
  - TACHYCARDIA [None]
  - FLUSHING [None]
  - ADVERSE EVENT [None]
